FAERS Safety Report 9217432 (Version 9)
Quarter: 2014Q4

REPORT INFORMATION
  Report Type: Spontaneous
  Country: US (occurrence: US)
  Receive Date: 20130408
  Receipt Date: 20141113
  Transmission Date: 20150529
  Serious: Yes (Hospitalization, Other)
  Sender: FDA-Public Use
  Company Number: US-009507513-1303USA014395

PATIENT
  Sex: Female
  Weight: 45.35 kg

DRUGS (14)
  1. FOSAMAX PLUS D [Suspect]
     Active Substance: ALENDRONATE SODIUM\CHOLECALCIFEROL
     Indication: OSTEOPOROSIS
  2. FOSAVANCE [Suspect]
     Active Substance: ALENDRONATE SODIUM\CHOLECALCIFEROL
     Indication: OSTEOPOROSIS PROPHYLAXIS
     Dosage: 70 MG, QW/ +D 28IU
     Route: 048
     Dates: start: 200703, end: 200905
  3. ALENDRONATE SODIUM. [Suspect]
     Active Substance: ALENDRONATE SODIUM
     Indication: OSTEOPOROSIS PROPHYLAXIS
     Dosage: 70 MG, QW
     Route: 048
     Dates: start: 200506, end: 200703
  4. CARDIZEM CD [Concomitant]
     Active Substance: DILTIAZEM HYDROCHLORIDE
     Indication: HYPERTENSION
     Dosage: 240 MG, QD
     Route: 048
  5. FOSAMAX [Suspect]
     Active Substance: ALENDRONATE SODIUM
     Dosage: 10 MG, QD
     Route: 048
  6. FOSAVANCE [Suspect]
     Active Substance: ALENDRONATE SODIUM\CHOLECALCIFEROL
     Indication: OSTEOPOROSIS
     Dosage: 70 MG, QW/5600IU + D
     Dates: start: 200905, end: 201004
  7. LOPRESSOR [Concomitant]
     Active Substance: METOPROLOL TARTRATE
     Indication: HYPERTENSION
     Dosage: 40 MG, QD
     Route: 048
  8. CALTRATE [Concomitant]
     Active Substance: CALCIUM CARBONATE
     Indication: OSTEOPOROSIS
     Dosage: 600 MG, BID
     Route: 048
  9. FOSAMAX PLUS D [Suspect]
     Active Substance: ALENDRONATE SODIUM\CHOLECALCIFEROL
     Indication: OSTEOPOROSIS PROPHYLAXIS
     Dosage: 70 MG, QW/5600IU +D
     Route: 048
     Dates: start: 200905, end: 200909
  10. TOPROL XL [Concomitant]
     Active Substance: METOPROLOL SUCCINATE
     Indication: HYPERTENSION
     Dosage: 24 MG, QD
     Route: 048
  11. FOSAMAX [Suspect]
     Active Substance: ALENDRONATE SODIUM
     Indication: OSTEOPOROSIS
     Dosage: 20 MG, QW
     Route: 048
  12. ALENDRONATE SODIUM. [Suspect]
     Active Substance: ALENDRONATE SODIUM
     Indication: OSTEOPOROSIS
  13. FOSAMAX [Suspect]
     Active Substance: ALENDRONATE SODIUM
     Indication: OSTEOPOROSIS PROPHYLAXIS
     Dosage: 70 MG, QW
     Route: 048
     Dates: start: 200301
  14. FOSAMAX PLUS D [Suspect]
     Active Substance: ALENDRONATE SODIUM\CHOLECALCIFEROL
     Dosage: 70 MG, QW/ 5600 IU +D
     Route: 048
     Dates: start: 200909, end: 201004

REACTIONS (54)
  - Internal fixation of fracture [Unknown]
  - Intramedullary rod insertion [Unknown]
  - Arthropathy [Unknown]
  - Anaemia postoperative [Unknown]
  - Hypercholesterolaemia [Unknown]
  - Bursitis [Unknown]
  - Osteoarthritis [Unknown]
  - Hyponatraemia [Unknown]
  - Haemorrhoids [Unknown]
  - Arcus lipoides [Unknown]
  - Urine leukocyte esterase positive [Unknown]
  - Spondylitis [Unknown]
  - Chronic obstructive pulmonary disease [Not Recovered/Not Resolved]
  - Back pain [Not Recovered/Not Resolved]
  - Thyroid operation [Unknown]
  - Iron deficiency [Unknown]
  - Carpal tunnel decompression [Unknown]
  - Femur fracture [Recovering/Resolving]
  - Osteopenia [Unknown]
  - Anaemia postoperative [Unknown]
  - Pulmonary mass [Unknown]
  - Vitamin B12 deficiency [Unknown]
  - Osteoarthritis [Unknown]
  - Fall [Unknown]
  - Bursitis [Recovering/Resolving]
  - Pulmonary fibrosis [Unknown]
  - Cardiac murmur [Unknown]
  - Bunion operation [Unknown]
  - Blood glucose increased [Unknown]
  - Intramedullary rod insertion [Unknown]
  - Fracture delayed union [Recovering/Resolving]
  - Asymptomatic bacteriuria [Unknown]
  - Femoral hernia [Unknown]
  - Abdominal hernia repair [Unknown]
  - Myalgia [Unknown]
  - Oophorectomy [Unknown]
  - Hypothyroidism [Unknown]
  - Coronary artery disease [Unknown]
  - Incorrect dose administered [Unknown]
  - Blood albumin decreased [Unknown]
  - Rheumatoid arthritis [Unknown]
  - Left ventricular hypertrophy [Unknown]
  - Femur fracture [Unknown]
  - Osteotomy [Unknown]
  - Bursitis [Unknown]
  - Diverticulum [Unknown]
  - Gastrointestinal haemorrhage [Unknown]
  - Cyst [Unknown]
  - Contusion [Unknown]
  - Bone graft [Unknown]
  - Arthritis [Unknown]
  - Injury [Unknown]
  - Neck pain [Not Recovered/Not Resolved]
  - Pain in extremity [Unknown]

NARRATIVE: CASE EVENT DATE: 2004
